FAERS Safety Report 5894299-2 (Version None)
Quarter: 2008Q3

REPORT INFORMATION
  Report Type: 
  Country: None (occurrence: None)
  Receive Date: 20080923
  Receipt Date: 20080417
  Transmission Date: 20090109
  Serious: No
  Sender: FDA-Public Use
  Company Number: US-ASTRAZENECA-2008UW07839

PATIENT
  Age: 8 Year
  Sex: Female
  Weight: 39 kg

DRUGS (3)
  1. SEROQUEL [Suspect]
     Indication: BIPOLAR DISORDER
     Route: 048
     Dates: start: 20071001
  2. TRILEPTAL [Concomitant]
  3. BENADRYL [Concomitant]

REACTIONS (6)
  - DENTAL CARIES [None]
  - DEPRESSION [None]
  - INSOMNIA [None]
  - LETHARGY [None]
  - SOMNOLENCE [None]
  - WEIGHT INCREASED [None]
